FAERS Safety Report 24660917 (Version 2)
Quarter: 2025Q1

REPORT INFORMATION
  Report Type: Spontaneous
  Country: US (occurrence: US)
  Receive Date: 20241125
  Receipt Date: 20250227
  Transmission Date: 20250409
  Serious: No
  Sender: AVADEL CNS PHARMACEUTICALS, LLC
  Company Number: US-AVADEL CNS PHARMACEUTICALS, LLC-2024AVA01952

PATIENT
  Age: 25 Year
  Sex: Male

DRUGS (4)
  1. LUMRYZ [Suspect]
     Active Substance: SODIUM OXYBATE
     Indication: Narcolepsy
     Dates: start: 20240917, end: 2024
  2. LUMRYZ [Suspect]
     Active Substance: SODIUM OXYBATE
     Indication: Narcolepsy
     Dosage: 7.5 G, ONCE NIGHTLY
     Dates: start: 20241002, end: 20241008
  3. LUMRYZ [Suspect]
     Active Substance: SODIUM OXYBATE
     Indication: Narcolepsy
     Dosage: 9 G, ONCE NIGHTLY
     Dates: start: 202410
  4. LUMRYZ [Suspect]
     Active Substance: SODIUM OXYBATE
     Dosage: 9 G, ONCE NIGHTLY
     Dates: start: 2024

REACTIONS (6)
  - Feeling abnormal [Not Recovered/Not Resolved]
  - Nausea [Unknown]
  - Somnolence [Not Recovered/Not Resolved]
  - Dizziness [Not Recovered/Not Resolved]
  - Enuresis [Not Recovered/Not Resolved]
  - Intentional dose omission [Not Recovered/Not Resolved]

NARRATIVE: CASE EVENT DATE: 20241001
